FAERS Safety Report 7256688-3 (Version None)
Quarter: 2011Q1

REPORT INFORMATION
  Report Type: 
  Country: None (occurrence: None)
  Receive Date: 20110129
  Receipt Date: 20100809
  Transmission Date: 20110831
  Serious: No
  Sender: FDA-Public Use
  Company Number: US-ABBOTT-10P-163-0663178-00

PATIENT
  Sex: Male
  Weight: 89.438 kg

DRUGS (8)
  1. HUMIRA [Suspect]
     Indication: CROHN'S DISEASE
     Dates: start: 20060101
  2. VITAMIN B [Concomitant]
     Indication: PRODUCT USED FOR UNKNOWN INDICATION
     Route: 030
  3. DIOVAN [Concomitant]
     Indication: HYPERTENSION
  4. VITAMIN D [Concomitant]
     Indication: PRODUCT USED FOR UNKNOWN INDICATION
  5. NEXIUM [Concomitant]
     Indication: PRODUCT USED FOR UNKNOWN INDICATION
  6. UNKNOWN IRON [Concomitant]
     Indication: MINERAL SUPPLEMENTATION
  7. PENTASA [Concomitant]
     Indication: CROHN'S DISEASE
     Dates: start: 20000101
  8. ALLOPURINOL [Concomitant]
     Indication: NEPHROLITHIASIS

REACTIONS (3)
  - LOCALISED INFECTION [None]
  - GASTROINTESTINAL INFECTION [None]
  - RHINORRHOEA [None]
